FAERS Safety Report 14331596 (Version 1)
Quarter: 2017Q4

REPORT INFORMATION
  Report Type: Spontaneous
  Country: US (occurrence: US)
  Receive Date: 20171228
  Receipt Date: 20171228
  Transmission Date: 20180321
  Serious: No
  Sender: FDA-Public Use
  Company Number: US-BAYER-2017-248189

PATIENT
  Age: 76 Year
  Sex: Female
  Weight: 59 kg

DRUGS (1)
  1. MIRALAX [Suspect]
     Active Substance: POLYETHYLENE GLYCOL 3350
     Indication: GASTROINTESTINAL DISORDER
     Route: 048
     Dates: start: 20171218

REACTIONS (4)
  - Drug ineffective [Unknown]
  - Flatulence [Unknown]
  - Prescribed underdose [Unknown]
  - Underdose [Unknown]

NARRATIVE: CASE EVENT DATE: 20171218
